FAERS Safety Report 21734001 (Version 1)
Quarter: 2022Q4

REPORT INFORMATION
  Report Type: Spontaneous
  Country: US (occurrence: US)
  Receive Date: 20221215
  Receipt Date: 20221215
  Transmission Date: 20230113
  Serious: Yes (Other)
  Sender: FDA-Public Use
  Company Number: US-BIOVITRUM-2022US09296

PATIENT
  Age: 45 Year
  Sex: Male

DRUGS (1)
  1. KINERET [Suspect]
     Active Substance: ANAKINRA
     Indication: Histiocytosis
     Dates: start: 20190407

REACTIONS (2)
  - Coeliac disease [Unknown]
  - Off label use [Unknown]

NARRATIVE: CASE EVENT DATE: 20190407
